FAERS Safety Report 18086388 (Version 1)
Quarter: 2020Q3

REPORT INFORMATION
  Report Type: Spontaneous
  Country: US (occurrence: US)
  Receive Date: 20200728
  Receipt Date: 20200728
  Transmission Date: 20201103
  Serious: No
  Sender: FDA-Public Use
  Company Number: None

PATIENT
  Age: 13 Year
  Sex: Female

DRUGS (2)
  1. ZYPREXA [Suspect]
     Active Substance: OLANZAPINE
  2. RISPERIDONE. [Concomitant]
     Active Substance: RISPERIDONE
     Dates: start: 20200624

REACTIONS (1)
  - Dystonia [None]

NARRATIVE: CASE EVENT DATE: 20200624
